FAERS Safety Report 4491452-X (Version None)
Quarter: 2004Q4

REPORT INFORMATION
  Report Type: 
  Country: None (occurrence: None)
  Receive Date: 20041102
  Receipt Date: 20041022
  Transmission Date: 20050328
  Serious: Yes (Hospitalization)
  Sender: FDA-Public Use
  Company Number: 04-10-1474

PATIENT
  Age: 43 Year
  Sex: Female

DRUGS (1)
  1. CLOZAPINE [Suspect]
     Indication: SCHIZOAFFECTIVE DISORDER
     Dosage: 150-700MG QD ORAL
     Route: 048
     Dates: start: 20010501

REACTIONS (2)
  - COLOSTOMY INFECTION [None]
  - SELF INJURIOUS BEHAVIOUR [None]
